FAERS Safety Report 10084042 (Version 1)
Quarter: 2014Q2

REPORT INFORMATION
  Report Type: Spontaneous
  Country: BR (occurrence: BR)
  Receive Date: 20140417
  Receipt Date: 20140417
  Transmission Date: 20141212
  Serious: Yes (Other)
  Sender: FDA-Public Use
  Company Number: BR-PFIZER INC-2014105176

PATIENT
  Age: 61 Year
  Sex: Male
  Weight: 88 kg

DRUGS (5)
  1. FRONTAL XR [Suspect]
     Dosage: UNSPECIFIED DOSE, 1X/DAY
     Route: 048
     Dates: start: 20120808
  2. TOPIRAMATE [Concomitant]
     Dosage: 1 TABLET, 2X/DAY
  3. PONDERA [Concomitant]
     Dosage: 30 MG, 2X/DAY
  4. RIVOTRIL [Concomitant]
     Dosage: 2 MG, 2X/DAY
  5. ZETRON [Concomitant]
     Dosage: 150 MG, 1X/DAY

REACTIONS (2)
  - Depression [Not Recovered/Not Resolved]
  - Bedridden [Not Recovered/Not Resolved]
